FAERS Safety Report 18222351 (Version 1)
Quarter: 2020Q3

REPORT INFORMATION
  Report Type: Spontaneous
  Country: US (occurrence: US)
  Receive Date: 20200902
  Receipt Date: 20200902
  Transmission Date: 20201103
  Serious: Yes (Hospitalization)
  Sender: FDA-Public Use
  Company Number: None

PATIENT
  Age: 70 Year
  Sex: Female
  Weight: 93.6 kg

DRUGS (8)
  1. HYDROCHLOROTHIAZIDE. [Concomitant]
     Active Substance: HYDROCHLOROTHIAZIDE
  2. METFORMIN [Concomitant]
     Active Substance: METFORMIN HYDROCHLORIDE
  3. VITAMIN MULTI [Concomitant]
  4. VITAMIN D3 [Concomitant]
     Active Substance: CHOLECALCIFEROL
  5. COENZYME Q10 [Concomitant]
     Active Substance: DIETARY SUPPLEMENT\UBIDECARENONE
  6. BABY ASPIRIN [Concomitant]
     Active Substance: ASPIRIN
  7. BENAZEPRIL [Concomitant]
     Active Substance: BENAZEPRIL HYDROCHLORIDE
  8. SMZ/TMP DS 800?160 TAB AMN GENERIC FOR BACTRIM DS 800?160 TAB [Suspect]
     Active Substance: SULFAMETHOXAZOLE\TRIMETHOPRIM
     Indication: LOCALISED INFECTION
     Route: 048
     Dates: start: 20200815, end: 20200817

REACTIONS (5)
  - Renal failure [None]
  - Internal haemorrhage [None]
  - Nervous system disorder [None]
  - Acute kidney injury [None]
  - Acute hepatic failure [None]

NARRATIVE: CASE EVENT DATE: 20200815
